FAERS Safety Report 24782219 (Version 1)
Quarter: 2024Q4

REPORT INFORMATION
  Report Type: Spontaneous
  Country: US (occurrence: US)
  Receive Date: 20241227
  Receipt Date: 20241227
  Transmission Date: 20250114
  Serious: No
  Sender: BIONPHARMA INC.
  Company Number: US-Bion-014614

PATIENT
  Sex: Female

DRUGS (2)
  1. IBUPROFEN [Suspect]
     Active Substance: IBUPROFEN
     Indication: Headache
  2. IBUPROFEN [Suspect]
     Active Substance: IBUPROFEN
     Indication: Headache

REACTIONS (2)
  - Poor quality product administered [Unknown]
  - Condition aggravated [Unknown]
